FAERS Safety Report 24960616 (Version 6)
Quarter: 2025Q2

REPORT INFORMATION
  Report Type: Spontaneous
  Country: US (occurrence: US)
  Receive Date: 20250212
  Receipt Date: 20250409
  Transmission Date: 20250716
  Serious: Yes (Other)
  Sender: PFIZER
  Company Number: US-PFIZER INC-2021360414

PATIENT
  Age: 80 Year
  Sex: Female

DRUGS (3)
  1. BOSULIF [Suspect]
     Active Substance: BOSUTINIB MONOHYDRATE
     Indication: Chronic myeloid leukaemia
     Dosage: TAKE 2 TABLET (100 MG) TWICE DAILY
     Route: 048
  2. BOSULIF [Suspect]
     Active Substance: BOSUTINIB MONOHYDRATE
     Route: 048
  3. BOSULIF [Suspect]
     Active Substance: BOSUTINIB MONOHYDRATE
     Dosage: TAKE 1 TABLET TWICE DAILY.
     Route: 048
     Dates: end: 202501

REACTIONS (3)
  - Spinal operation [Unknown]
  - Off label use [Unknown]
  - Off label use [Unknown]
